FAERS Safety Report 10411882 (Version 1)
Quarter: 2014Q2

REPORT INFORMATION
  Report Type: Spontaneous
  Country: US (occurrence: None)
  Receive Date: 20140604
  Receipt Date: 20140604
  Transmission Date: 20141212
  Serious: Yes (Hospitalization)
  Sender: FDA-Public Use
  Company Number: 163-POMAL-14031241

PATIENT
  Age: 51 Year
  Sex: 0

DRUGS (4)
  1. POMALYST (POMALIDOMIDE) (CAPSULES) [Suspect]
     Indication: PLASMA CELL MYELOMA
     Dosage: TEMPORARILY INTERRUPTED
     Route: 048
     Dates: start: 20130823
  2. ASPIRIN (ACETYLSALICYLIC ACID) [Concomitant]
  3. MAG OX (MAGNESIUM OXIDE) [Concomitant]
  4. CALCIUM [Concomitant]

REACTIONS (1)
  - Pyrexia [None]
